FAERS Safety Report 13984119 (Version 3)
Quarter: 2018Q1

REPORT INFORMATION
  Report Type: Report from Study
  Country: JP (occurrence: JP)
  Receive Date: 20170918
  Receipt Date: 20180109
  Transmission Date: 20180508
  Serious: Yes (Other)
  Sender: FDA-Public Use
  Company Number: JP-MALLINCKRODT-T201703780

PATIENT
  Sex: Female
  Weight: 3 kg

DRUGS (33)
  1. VECURONIUM [Concomitant]
     Active Substance: VECURONIUM BROMIDE
     Dosage: 0.3 MG, 1 TIME
     Route: 042
     Dates: start: 20170304, end: 20170304
  2. DIAZEPAM. [Concomitant]
     Active Substance: DIAZEPAM
     Indication: PRODUCT USED FOR UNKNOWN INDICATION
     Dosage: 1 MG, 1 TIME
     Route: 042
     Dates: start: 20170304, end: 20170304
  3. NITRIC OXIDE. [Suspect]
     Active Substance: NITRIC OXIDE
     Dosage: 10 PPM
     Dates: start: 20170306, end: 20170306
  4. NITRIC OXIDE. [Suspect]
     Active Substance: NITRIC OXIDE
     Dosage: 0.5 PPM
     Dates: start: 20170306, end: 20170307
  5. FAMOTIDINE. [Concomitant]
     Active Substance: FAMOTIDINE
     Indication: PRODUCT USED FOR UNKNOWN INDICATION
     Dosage: 0.8 MG, 2 TIMES A DAY
     Route: 042
     Dates: start: 20170304
  6. MIDAZOLAM [Concomitant]
     Active Substance: MIDAZOLAM HYDROCHLORIDE
     Indication: PRODUCT USED FOR UNKNOWN INDICATION
     Dosage: 0.4 MG, 1 TIME
     Route: 042
     Dates: start: 20170304, end: 20170304
  7. CEFOTAXIME [Concomitant]
     Active Substance: CEFOTAXIME SODIUM
     Indication: PRODUCT USED FOR UNKNOWN INDICATION
     Dosage: 120 MG, 3 TIMES A DAY
     Route: 042
     Dates: start: 20170306, end: 20170309
  8. MILRINONE [Concomitant]
     Active Substance: MILRINONE
     Indication: PRODUCT USED FOR UNKNOWN INDICATION
     Dosage: UNK
     Route: 065
  9. VECURONIUM [Concomitant]
     Active Substance: VECURONIUM BROMIDE
     Indication: PRODUCT USED FOR UNKNOWN INDICATION
     Dosage: 0.34 MG/HR, CONTINUOUS
     Route: 042
     Dates: start: 20170304, end: 20170306
  10. NITRIC OXIDE. [Suspect]
     Active Substance: NITRIC OXIDE
     Indication: PULMONARY HYPERTENSION
     Dosage: 10 PPM
     Dates: start: 20170304, end: 20170304
  11. BOSMIN [Concomitant]
     Active Substance: EPINEPHRINE
     Dosage: 10 UG/HR, CONTINUOUS
     Route: 042
     Dates: start: 20170305, end: 20170307
  12. MIDAZOLAM [Concomitant]
     Active Substance: MIDAZOLAM HYDROCHLORIDE
     Dosage: 0.66 MG/HR, CONTINUOUS
     Route: 042
     Dates: start: 20170304, end: 20170309
  13. LASIX [Concomitant]
     Active Substance: FUROSEMIDE
     Indication: PRODUCT USED FOR UNKNOWN INDICATION
     Dosage: 1 MG, 1 TIME
     Route: 042
     Dates: start: 20170304, end: 20170304
  14. NITRIC OXIDE. [Suspect]
     Active Substance: NITRIC OXIDE
     Dosage: 20 PPM
     Dates: start: 20170304, end: 20170305
  15. NITRIC OXIDE. [Suspect]
     Active Substance: NITRIC OXIDE
     Dosage: 10 PPM
     Dates: start: 20170305, end: 20170305
  16. VICCILLIN [Concomitant]
     Active Substance: AMPICILLIN
     Dosage: 80 MG, 1 TIME
     Route: 042
     Dates: start: 20170305, end: 20170305
  17. ALBUMIN [Concomitant]
     Active Substance: ALBUMIN HUMAN
     Indication: PRODUCT USED FOR UNKNOWN INDICATION
     Dosage: 3 ML/HR, CONTINUOUS (25%)
     Route: 042
     Dates: start: 20170304, end: 20170305
  18. MANNITOL. [Concomitant]
     Active Substance: MANNITOL
     Indication: PRODUCT USED FOR UNKNOWN INDICATION
     Dosage: 1 ML/HR, CONTINUOUS
     Route: 042
     Dates: start: 20170304, end: 20170306
  19. RINDERON V [Concomitant]
     Active Substance: BETAMETHASONE VALERATE
     Indication: PRODUCT USED FOR UNKNOWN INDICATION
     Dosage: 0.8 MG, 2 TIMES A DAY
     Route: 042
     Dates: start: 20170304
  20. VICCILLIN [Concomitant]
     Active Substance: AMPICILLIN
     Dosage: 80 MG, 4 TIMES A DAY
     Route: 042
     Dates: start: 20170305, end: 20170305
  21. FUROSEMIDE. [Concomitant]
     Active Substance: FUROSEMIDE
     Indication: PRODUCT USED FOR UNKNOWN INDICATION
     Dosage: 2 MG, 2 TIMES A DAY
     Route: 042
     Dates: start: 20170305, end: 20170305
  22. FUROSEMIDE. [Concomitant]
     Active Substance: FUROSEMIDE
     Dosage: 2 MG, 1 TIME
     Route: 042
     Dates: start: 20170306, end: 20170306
  23. CALCICOL [Concomitant]
     Active Substance: CALCIUM GLUCONATE
     Indication: PRODUCT USED FOR UNKNOWN INDICATION
     Dosage: 2 ML/HR, CONTINUOUS
     Route: 042
     Dates: start: 20170305, end: 20170305
  24. NITRIC OXIDE. [Suspect]
     Active Substance: NITRIC OXIDE
     Dosage: 20 PPM
     Dates: start: 20170305, end: 20170306
  25. NITRIC OXIDE. [Suspect]
     Active Substance: NITRIC OXIDE
     Dosage: 5 PPM
     Dates: start: 20170306, end: 20170306
  26. NITRIC OXIDE. [Suspect]
     Active Substance: NITRIC OXIDE
     Dosage: 1 PPM
     Dates: start: 20170306, end: 20170306
  27. PROTAMINE [Concomitant]
     Active Substance: PROTAMINE
     Indication: PRODUCT USED FOR UNKNOWN INDICATION
     Dosage: 8 MG, 1 TIME
     Route: 042
     Dates: start: 20170304, end: 20170304
  28. INOVAN [Concomitant]
     Active Substance: DOPAMINE HYDROCHLORIDE
     Indication: PRODUCT USED FOR UNKNOWN INDICATION
     Dosage: 1 MG/HR, CONTINUOUS
     Route: 042
     Dates: start: 20170304, end: 20170309
  29. BOSMIN [Concomitant]
     Active Substance: EPINEPHRINE
     Indication: PRODUCT USED FOR UNKNOWN INDICATION
     Dosage: 5 UG/HR, CONTINUOUS
     Route: 042
     Dates: start: 20170304, end: 20170304
  30. NEOPHYLLIN [Concomitant]
     Active Substance: AMINOPHYLLINE
     Indication: PRODUCT USED FOR UNKNOWN INDICATION
     Dosage: 1 MG, 1 TIME
     Route: 042
     Dates: start: 20170304, end: 20170304
  31. VICCILLIN [Concomitant]
     Active Substance: AMPICILLIN
     Indication: PRODUCT USED FOR UNKNOWN INDICATION
     Dosage: 80 MG, 2 TIMES A DAY
     Route: 042
     Dates: start: 20170304, end: 20170304
  32. FENTANYL. [Concomitant]
     Active Substance: FENTANYL
     Indication: PRODUCT USED FOR UNKNOWN INDICATION
     Dosage: 6.64 UG/HR, CONTINUOUS
     Route: 042
     Dates: start: 20170304, end: 20170306
  33. POTASSIUM CHLORIDE. [Concomitant]
     Active Substance: POTASSIUM CHLORIDE
     Indication: PRODUCT USED FOR UNKNOWN INDICATION
     Dosage: 10 ML WITH ST3 10 ML, 1 TIME
     Route: 042
     Dates: start: 20170305, end: 20170305

REACTIONS (1)
  - Acute kidney injury [Recovering/Resolving]

NARRATIVE: CASE EVENT DATE: 20170304
